FAERS Safety Report 5211524-1 (Version None)
Quarter: 2007Q1

REPORT INFORMATION
  Report Type: 
  Country: None (occurrence: None)
  Receive Date: 20070116
  Receipt Date: 20070105
  Transmission Date: 20070707
  Serious: Yes (Death, Other)
  Sender: FDA-Public Use
  Company Number: GXKR2007US00507

PATIENT
  Age: 61 Year
  Sex: Male

DRUGS (16)
  1. MIRTAZAPINE [Suspect]
  2. FENTANYL [Suspect]
     Dosage: 3 DF, Q72H, TOPICAL
     Route: 061
  3. CITALOPRAM HYDROBROMIDE [Suspect]
  4. CODEINE SUL TAB [Suspect]
  5. HYDROCODONE BITARTRATE [Suspect]
  6. LORAZEPAM [Concomitant]
  7. DEPAKOTE [Concomitant]
  8. ZOLPIDEM TARTRATE [Concomitant]
  9. ESCITALOPRAM OXALATE [Concomitant]
  10. DOXEPIN HCL [Concomitant]
  11. CELECOXIB [Concomitant]
  12. NEURONTIN [Concomitant]
  13. ZONISAMIDE [Concomitant]
  14. ALCOHOL (ETHANOL) [Concomitant]
  15. MARIJUANA (CANNABIS, CANNABIS SATIVA) [Concomitant]
  16. TIZANIDINE HCL [Concomitant]

REACTIONS (3)
  - MULTIPLE DRUG OVERDOSE ACCIDENTAL [None]
  - PULMONARY OEDEMA [None]
  - VISCERAL CONGESTION [None]
